FAERS Safety Report 6538170-1 (Version None)
Quarter: 2010Q1

REPORT INFORMATION
  Report Type: 
  Country: None (occurrence: None)
  Receive Date: 20100114
  Receipt Date: 20100105
  Transmission Date: 20100710
  Serious: Yes (Other)
  Sender: FDA-Public Use
  Company Number: PHHY2009MX54874

PATIENT
  Sex: Female

DRUGS (3)
  1. DIOVAN [Suspect]
     Indication: HYPERTENSION
     Dosage: 320 MG/DAY
     Route: 048
     Dates: start: 20090401, end: 20091201
  2. EPOGEN [Concomitant]
     Dosage: 2 TIMES A WEEK
  3. IRON [Concomitant]

REACTIONS (4)
  - DIARRHOEA [None]
  - GASTRIC INFECTION [None]
  - HAEMATEMESIS [None]
  - HYPOTENSION [None]
